FAERS Safety Report 4413021-X (Version None)
Quarter: 2004Q3

REPORT INFORMATION
  Report Type: 
  Country: None (occurrence: None)
  Receive Date: 20040730
  Receipt Date: 20040730
  Transmission Date: 20050211
  Serious: Yes (Hospitalization)
  Sender: FDA-Public Use
  Company Number: None

PATIENT
  Age: 77 Year
  Sex: Male
  Weight: 77.1115 kg

DRUGS (24)
  1. CYCLOBENZAPRINE HCL [Suspect]
     Indication: MUSCLE SPASMS
     Dosage: 10 MG PO TID
     Route: 048
     Dates: start: 20040505, end: 20040507
  2. MORPHINE [Suspect]
     Indication: BACK PAIN
     Dates: start: 20040505, end: 20040506
  3. MORPHINE SULFATE [Concomitant]
     Indication: BACK PAIN
     Dosage: 15 MG PO Q4 H PRN
     Route: 048
  4. MORPHINE SULFATE [Concomitant]
     Indication: BACK PAIN
     Dosage: 2 MG/ML SQ Q2H PRN
     Route: 058
  5. MORPHINE SUL TAB [Concomitant]
     Dosage: 15 MG PO Q8H
     Route: 048
  6. ALBUTEROL MDI INH [Concomitant]
  7. ALBUTEROL/IPRATROPIUM INHL [Concomitant]
  8. ALOH/MGOH/SIMTH XTRA STRENGTH [Concomitant]
  9. CALCIUM/VITAMIN D [Concomitant]
  10. CARVEDILOL [Concomitant]
  11. DOXYCYCLINE HYCLATE [Concomitant]
  12. FUROSEMIDE [Concomitant]
  13. GUALIFENESIN [Concomitant]
  14. HYDRALAZINE HCL [Concomitant]
  15. ISOSORBIDE MONONITRATE SA [Concomitant]
  16. MILK OF MAGNESIA TAB [Concomitant]
  17. NITROGLYCERIN [Concomitant]
  18. RANITIDINE HCL [Concomitant]
  19. SENNOSIDES [Concomitant]
  20. SODIUM CHLORIDE INJ [Concomitant]
  21. SPIRONOLACTONE [Concomitant]
  22. TEMAZEPAM [Concomitant]
  23. COUMADIN [Concomitant]
  24. ZINC SULFATE [Concomitant]

REACTIONS (1)
  - LETHARGY [None]
